FAERS Safety Report 15669809 (Version 2)
Quarter: 2018Q4

REPORT INFORMATION
  Report Type: Spontaneous
  Country: DE (occurrence: DE)
  Receive Date: 20181129
  Receipt Date: 20181206
  Transmission Date: 20190205
  Serious: Yes (Life-Threatening, Other)
  Sender: FDA-Public Use
  Company Number: DE-PFIZER INC-2018487220

PATIENT
  Age: 19 Year
  Sex: Female

DRUGS (3)
  1. CLINDAMYCIN PHOSPHATE. [Suspect]
     Active Substance: CLINDAMYCIN PHOSPHATE
     Dosage: UNK
  2. IBUPROFEN. [Suspect]
     Active Substance: IBUPROFEN
     Dosage: UNK
  3. METAMIZOLE [Suspect]
     Active Substance: METAMIZOLE
     Dosage: UNK

REACTIONS (2)
  - Hepatic failure [Unknown]
  - Condition aggravated [Unknown]
